FAERS Safety Report 11585534 (Version 1)
Quarter: 2015Q4

REPORT INFORMATION
  Report Type: Spontaneous
  Country: US (occurrence: US)
  Receive Date: 20151001
  Receipt Date: 20151001
  Transmission Date: 20160304
  Serious: No
  Sender: FDA-Public Use
  Company Number: US-BAYER-2015-422222

PATIENT
  Sex: Male

DRUGS (1)
  1. CIPRO [Suspect]
     Active Substance: CIPROFLOXACIN HYDROCHLORIDE
     Indication: TOOTH EXTRACTION
     Dosage: UNK
     Dates: start: 201509

REACTIONS (2)
  - Dyspnoea [None]
  - Back pain [None]

NARRATIVE: CASE EVENT DATE: 201509
